FAERS Safety Report 10586534 (Version 1)
Quarter: 2014Q4

REPORT INFORMATION
  Report Type: Report from Study
  Country: BR (occurrence: BR)
  Receive Date: 20141117
  Receipt Date: 20141117
  Transmission Date: 20150529
  Serious: Yes (Hospitalization)
  Sender: FDA-Public Use
  Company Number: BR-BIOGENIDEC-2014BI119337

PATIENT
  Age: 48 Year
  Sex: Female

DRUGS (1)
  1. TYSABRI [Suspect]
     Active Substance: NATALIZUMAB
     Indication: MULTIPLE SCLEROSIS
     Route: 042
     Dates: start: 20130914

REACTIONS (3)
  - Herpes zoster [Recovered/Resolved]
  - Nausea [Not Recovered/Not Resolved]
  - Dengue fever [Recovered/Resolved]

NARRATIVE: CASE EVENT DATE: 20131201
